FAERS Safety Report 6711552-0 (Version None)
Quarter: 2010Q2

REPORT INFORMATION
  Report Type: 
  Country: None (occurrence: None)
  Receive Date: 20100505
  Receipt Date: 20100422
  Transmission Date: 20101027
  Serious: Yes (Other)
  Sender: FDA-Public Use
  Company Number: PHHY2010JP25928

PATIENT
  Sex: Male

DRUGS (4)
  1. DIOVAN [Suspect]
     Dosage: 40 MG, QD
     Route: 048
  2. LASIX [Concomitant]
     Dosage: 20 MG, QD
     Route: 048
  3. ALDACTONE [Concomitant]
     Dosage: 25 MG, QD
     Route: 048
  4. RISUMIC [Concomitant]
     Dosage: 2 DF, QD
     Route: 048

REACTIONS (3)
  - BLOOD PRESSURE DECREASED [None]
  - BLOOD PRESSURE INCREASED [None]
  - CARDIAC FAILURE [None]
